FAERS Safety Report 9980096 (Version 1)
Quarter: 2014Q1

REPORT INFORMATION
  Report Type: Spontaneous
  Country: US (occurrence: None)
  Receive Date: 20140305
  Receipt Date: 20140305
  Transmission Date: 20141002
  Serious: Yes (Life-Threatening)
  Sender: FDA-Public Use
  Company Number: None

PATIENT
  Age: 63 Year
  Sex: Female
  Weight: 77.29 kg

DRUGS (1)
  1. ERBITUX [Suspect]
     Indication: COLON CANCER
     Dosage: 744 MG X 1 LOADING DOSE
     Dates: start: 20140303

REACTIONS (6)
  - Dyspnoea [None]
  - Back pain [None]
  - Chest pain [None]
  - Erythema [None]
  - Flushing [None]
  - Hypotension [None]
